FAERS Safety Report 24292256 (Version 1)
Quarter: 2024Q3

REPORT INFORMATION
  Report Type: Spontaneous
  Country: US (occurrence: None)
  Receive Date: 20240906
  Receipt Date: 20240906
  Transmission Date: 20241017
  Serious: No
  Sender: DOMPE FARMACEUTICI
  Company Number: US-FARMAPROD-202307-2259

PATIENT
  Sex: Female
  Weight: 62.14 kg

DRUGS (11)
  1. OXERVATE [Suspect]
     Active Substance: CENEGERMIN-BKBJ
     Indication: Neurotrophic keratopathy
     Route: 047
     Dates: start: 20230614, end: 20230717
  2. PROLIA [Concomitant]
     Active Substance: DENOSUMAB
     Dosage: SYRINGE
  3. LIOTHYRONINE SODIUM [Concomitant]
     Active Substance: LIOTHYRONINE SODIUM
  4. METHOTREXATE [Concomitant]
     Active Substance: METHOTREXATE
  5. VITAMINS [Concomitant]
     Active Substance: VITAMINS
  6. CALCIUM [Concomitant]
     Active Substance: CALCIUM
     Dosage: 500(1250)
  7. HYDROXYCHLOROQUINE SULFATE [Concomitant]
     Active Substance: HYDROXYCHLOROQUINE SULFATE
  8. CARVEDILOL [Concomitant]
     Active Substance: CARVEDILOL
  9. LEVOTHYROXINE SODIUM [Concomitant]
     Active Substance: LEVOTHYROXINE SODIUM
  10. REFRESH PLUS [Concomitant]
     Active Substance: CARBOXYMETHYLCELLULOSE SODIUM
  11. RESTASIS [Concomitant]
     Active Substance: CYCLOSPORINE

REACTIONS (2)
  - Rash [Recovering/Resolving]
  - Rash [Recovering/Resolving]
